FAERS Safety Report 5429501-4 (Version None)
Quarter: 2007Q3

REPORT INFORMATION
  Report Type: 
  Country: None (occurrence: None)
  Receive Date: 20070829
  Receipt Date: 20070822
  Transmission Date: 20080115
  Serious: Yes (Other)
  Sender: FDA-Public Use
  Company Number: B0484956A

PATIENT
  Age: 38 Year
  Sex: Female

DRUGS (5)
  1. ZIAGEN [Suspect]
     Indication: DRUG USE FOR UNKNOWN INDICATION
     Dosage: 300MG UNKNOWN
     Route: 048
     Dates: start: 20070221, end: 20070321
  2. LAMIVUDINE [Concomitant]
     Dosage: 150MG UNKNOWN
     Route: 048
  3. VIRAMUNE [Concomitant]
     Dosage: 200MG UNKNOWN
     Route: 048
  4. METHADON HCL TAB [Concomitant]
     Dosage: 170MG PER DAY
     Route: 048
  5. IMOVANE [Concomitant]
     Dosage: 7.5MG PER DAY
     Route: 048

REACTIONS (4)
  - BLOOD CREATINE PHOSPHOKINASE INCREASED [None]
  - CONSTIPATION [None]
  - FATIGUE [None]
  - RHABDOMYOLYSIS [None]
